FAERS Safety Report 7475802-8 (Version None)
Quarter: 2011Q2

REPORT INFORMATION
  Report Type: 
  Country: None (occurrence: None)
  Receive Date: 20110512
  Receipt Date: 20110505
  Transmission Date: 20111010
  Serious: Yes (Hospitalization, Other)
  Sender: FDA-Public Use
  Company Number: PHHY2011KR38155

PATIENT
  Age: 34 Year
  Sex: Female

DRUGS (1)
  1. DICLOFENAC SODIUM [Suspect]
     Dosage: UNK UKN, UNK
     Route: 030

REACTIONS (9)
  - MUSCULOSKELETAL PAIN [None]
  - ABSCESS [None]
  - INJECTION SITE OEDEMA [None]
  - SWELLING [None]
  - EMBOLIA CUTIS MEDICAMENTOSA [None]
  - ULCER [None]
  - PURPURA [None]
  - NECROSIS [None]
  - SKIN HYPERTROPHY [None]
